FAERS Safety Report 10761771 (Version 2)
Quarter: 2015Q1

REPORT INFORMATION
  Report Type: Spontaneous
  Country: AT (occurrence: AT)
  Receive Date: 20150204
  Receipt Date: 20150206
  Transmission Date: 20150721
  Serious: Yes (Hospitalization)
  Sender: FDA-Public Use
  Company Number: AT-ABBVIE-15P-009-1339145-00

PATIENT
  Sex: Male

DRUGS (1)
  1. DUODOPA [Suspect]
     Active Substance: CARBIDOPA\LEVODOPA
     Indication: PARKINSON^S DISEASE
     Dosage: MD: 11.0 ML, ED: 2.0 ML, CR: 5.6 ML/HR
     Route: 050

REACTIONS (4)
  - Abscess [Recovered/Resolved]
  - Inflammation [Recovered/Resolved]
  - Device dislocation [Recovered/Resolved]
  - Purulent discharge [Recovered/Resolved]
